FAERS Safety Report 5713804-X (Version None)
Quarter: 2008Q2

REPORT INFORMATION
  Report Type: 
  Country: None (occurrence: None)
  Receive Date: 20080421
  Receipt Date: 20080128
  Transmission Date: 20081010
  Serious: Yes (Hospitalization)
  Sender: FDA-Public Use
  Company Number: 20063275

PATIENT
  Sex: Female

DRUGS (10)
  1. LIORESAL [Suspect]
     Indication: MUSCLE SPASTICITY
     Dosage: 500 MCG, DAILY, INTRATHECAL
     Route: 037
  2. COPAXONE [Concomitant]
  3. KLONOPIN [Concomitant]
  4. AMITRIPTLINE HCL [Concomitant]
  5. NEURONTIN [Concomitant]
  6. SYNTHROID [Concomitant]
  7. TOPROL-XL [Concomitant]
  8. ORAL BACLOFEN [Concomitant]
  9. CEFTRIAXONE [Concomitant]
  10. VANCOMYCIN [Concomitant]

REACTIONS (24)
  - ALLERGY TO CHEMICALS [None]
  - ASTHENIA [None]
  - COLD SWEAT [None]
  - CSF GLUCOSE ABNORMAL [None]
  - CSF PROTEIN ABNORMAL [None]
  - CSF TEST ABNORMAL [None]
  - CSF WHITE BLOOD CELL COUNT INCREASED [None]
  - DECREASED APPETITE [None]
  - DRUG EFFECT DECREASED [None]
  - DRUG WITHDRAWAL SYNDROME [None]
  - FALL [None]
  - GAIT DISTURBANCE [None]
  - HYPERHIDROSIS [None]
  - INFLAMMATION [None]
  - INFUSION RELATED REACTION [None]
  - MENINGITIS [None]
  - MUSCLE SPASMS [None]
  - MUSCLE SPASTICITY [None]
  - MUSCULOSKELETAL STIFFNESS [None]
  - NAUSEA [None]
  - PHOTOSENSITIVITY REACTION [None]
  - SPINAL DISORDER [None]
  - VOMITING [None]
  - WALKING AID USER [None]
